FAERS Safety Report 14327471 (Version 1)
Quarter: 2017Q4

REPORT INFORMATION
  Report Type: Report from Study
  Country: US (occurrence: US)
  Receive Date: 20171227
  Receipt Date: 20171227
  Transmission Date: 20180321
  Serious: Yes (Other)
  Sender: FDA-Public Use
  Company Number: US-BAYER-2017-098152

PATIENT
  Age: 71 Year
  Sex: Male

DRUGS (9)
  1. CENTRUM SILVER [Concomitant]
     Active Substance: MINERALS\VITAMINS
  2. AVODART [Concomitant]
     Active Substance: DUTASTERIDE
  3. BABY ASPIRIN [Concomitant]
     Active Substance: ASPIRIN
  4. CYANOCOBALAMIN. [Concomitant]
     Active Substance: CYANOCOBALAMIN
  5. NEXAVAR [Suspect]
     Active Substance: SORAFENIB
     Indication: HEPATOCELLULAR CARCINOMA
     Dosage: 400 MG, BID ON AN EMPTY STOMACH
     Route: 048
  6. NEXAVAR [Suspect]
     Active Substance: SORAFENIB
     Indication: HEPATOCELLULAR CARCINOMA
     Dosage: 400 MG, BID ON AN EMPTY STOMACH
     Route: 048
     Dates: start: 20170513
  7. NEXAVAR [Suspect]
     Active Substance: SORAFENIB
     Indication: HEPATOCELLULAR CARCINOMA
     Dosage: 200 MG, BID
     Route: 048
     Dates: start: 20170722
  8. NEXAVAR [Suspect]
     Active Substance: SORAFENIB
     Indication: HEPATOCELLULAR CARCINOMA
     Dosage: 200 MG, BID ON AN EMPTY STOMACH
     Route: 048
  9. NEXAVAR [Suspect]
     Active Substance: SORAFENIB
     Indication: HEPATOCELLULAR CARCINOMA
     Dosage: 200 MG, DAILY
     Route: 048
     Dates: start: 20170727

REACTIONS (14)
  - Gait inability [None]
  - Pain [None]
  - Weight decreased [None]
  - Depressed mood [None]
  - Constipation [None]
  - Decreased appetite [None]
  - Blister [None]
  - Decreased interest [None]
  - Nausea [None]
  - Fatigue [None]
  - Blood blister [None]
  - Diarrhoea [None]
  - Rash [None]
  - Blood blister [None]

NARRATIVE: CASE EVENT DATE: 2017
